FAERS Safety Report 15406535 (Version 2)
Quarter: 2018Q4

REPORT INFORMATION
  Report Type: Spontaneous
  Country: GB (occurrence: GB)
  Receive Date: 20180920
  Receipt Date: 20181130
  Transmission Date: 20190204
  Serious: Yes (Death, Hospitalization, Other)
  Sender: FDA-Public Use
  Company Number: DE-ALKEM LABORATORIES LIMITED-DE-ALKEM-2018-07423

PATIENT
  Age: 33 Year
  Sex: Female

DRUGS (2)
  1. PHENYLEPHRINE HYDROCHLORIDE. [Suspect]
     Active Substance: PHENYLEPHRINE HYDROCHLORIDE
     Indication: PRODUCT USED FOR UNKNOWN INDICATION
     Dosage: 1.6 MG/KG, UNK
     Route: 065
  2. METFORMIN HYDROCHLORIDE. [Suspect]
     Active Substance: METFORMIN HYDROCHLORIDE
     Indication: PRODUCT USED FOR UNKNOWN INDICATION
     Dosage: 500 MG, UNK, 70 METFORMIN 500 MG TABLET
     Route: 048

REACTIONS (8)
  - Circulatory collapse [Unknown]
  - Drug ineffective [Unknown]
  - Overdose [Fatal]
  - Metabolic acidosis [Unknown]
  - Agitation [Unknown]
  - Paraesthesia [Unknown]
  - Anuria [Unknown]
  - Visual impairment [Unknown]
